FAERS Safety Report 9784434 (Version 1)
Quarter: 2013Q4

REPORT INFORMATION
  Report Type: Spontaneous
  Country: CH (occurrence: CH)
  Receive Date: 20131226
  Receipt Date: 20131226
  Transmission Date: 20140711
  Serious: Yes (Other)
  Sender: FDA-Public Use
  Company Number: CH-BAXTER-2013BAX051249

PATIENT
  Age: 54 Year
  Sex: Male

DRUGS (29)
  1. ENDOXAN 1 G [Suspect]
     Indication: IMMUNOSUPPRESSANT DRUG THERAPY
     Route: 041
     Dates: start: 20131126, end: 20131127
  2. ENDOXAN 1 G [Suspect]
     Route: 041
     Dates: start: 20131126, end: 20131127
  3. UROMITEXAN MULTIDOSE 100 MG/1 ML [Suspect]
     Indication: PROPHYLAXIS
     Dosage: 12 AMP
     Route: 041
     Dates: start: 20131126, end: 20131127
  4. BUSILVEX [Suspect]
     Indication: IMMUNOSUPPRESSANT DRUG THERAPY
     Route: 041
     Dates: start: 20131128, end: 20131201
  5. ATG FRESENIUS S [Suspect]
     Indication: IMMUNOSUPPRESSANT DRUG THERAPY
     Route: 041
     Dates: start: 20131129, end: 20131129
  6. ATG FRESENIUS S [Suspect]
     Route: 041
     Dates: start: 20131130, end: 20131201
  7. SOLU MEDROL [Suspect]
     Indication: IMMUNOSUPPRESSANT DRUG THERAPY
     Route: 041
     Dates: start: 20131129, end: 20131201
  8. AMIKIN [Suspect]
     Indication: INFECTION
     Route: 041
     Dates: start: 20131128, end: 20131130
  9. NOPIL [Suspect]
     Indication: PROPHYLAXIS
     Route: 048
     Dates: start: 20131122
  10. CEFEPIM [Suspect]
     Indication: BACTERIAL INFECTION
     Route: 065
     Dates: start: 20131128, end: 20131205
  11. DIFLUCAN [Suspect]
     Indication: PROPHYLAXIS
     Route: 048
     Dates: start: 20131121
  12. VALTREX [Suspect]
     Indication: PROPHYLAXIS
     Route: 048
     Dates: start: 20131121
  13. LASIX [Suspect]
     Indication: DIURETIC THERAPY
     Route: 041
     Dates: start: 20131126, end: 20131202
  14. LASIX [Suspect]
     Dosage: VARYING DOSES OF 20MG-120MG
     Route: 042
  15. PANTOZOL [Suspect]
     Indication: PROPHYLAXIS
     Route: 048
     Dates: start: 20131122
  16. ZYLORIC [Suspect]
     Indication: GOUT
     Route: 048
     Dates: start: 20131121, end: 20131203
  17. APREPITANT [Suspect]
     Indication: NAUSEA
     Route: 041
     Dates: start: 20131126, end: 20131126
  18. APREPITANT [Suspect]
     Indication: VOMITING
     Route: 042
     Dates: start: 20131127
  19. ALOXI [Suspect]
     Indication: NAUSEA
     Route: 041
     Dates: start: 20131126, end: 20131126
  20. ALOXI [Suspect]
     Indication: VOMITING
  21. SANDIMMUN [Concomitant]
     Indication: IMMUNOSUPPRESSANT DRUG THERAPY
     Route: 042
     Dates: start: 20131201, end: 20131203
  22. SANDIMMUN [Concomitant]
     Route: 042
     Dates: start: 20131203, end: 20131205
  23. SOLU CORTEF [Concomitant]
     Indication: PRODUCT USED FOR UNKNOWN INDICATION
     Route: 065
     Dates: start: 20131204, end: 20131204
  24. FORTECORTIN [Concomitant]
     Indication: PRODUCT USED FOR UNKNOWN INDICATION
     Route: 065
     Dates: start: 20131126, end: 20131129
  25. CLEMASTIN FUMARAT [Concomitant]
     Indication: PRODUCT USED FOR UNKNOWN INDICATION
     Route: 065
     Dates: start: 20131129, end: 20131201
  26. METOCLOPRAMIDE HYDROCHLORIDE [Concomitant]
     Indication: PRODUCT USED FOR UNKNOWN INDICATION
     Route: 065
     Dates: start: 20131127, end: 20131127
  27. HEPARIN [Concomitant]
     Indication: PRODUCT USED FOR UNKNOWN INDICATION
     Route: 065
     Dates: start: 20131126
  28. URSOFALK [Concomitant]
     Indication: PRODUCT USED FOR UNKNOWN INDICATION
     Route: 065
     Dates: start: 20131126
  29. TAZOBAC [Concomitant]
     Indication: PRODUCT USED FOR UNKNOWN INDICATION
     Route: 065
     Dates: start: 20131205, end: 20131206

REACTIONS (4)
  - Jaundice [Recovering/Resolving]
  - Haemolysis [Unknown]
  - Hyperbilirubinaemia [Recovering/Resolving]
  - Hepatic enzyme increased [Recovering/Resolving]
